FAERS Safety Report 5845416-1 (Version None)
Quarter: 2008Q3

REPORT INFORMATION
  Report Type: 
  Country: None (occurrence: None)
  Receive Date: 20080731
  Receipt Date: 20080521
  Transmission Date: 20090109
  Serious: No
  Sender: FDA-Public Use
  Company Number: US200805004599

PATIENT
  Age: 55 Year
  Sex: Female

DRUGS (5)
  1. BYETTA [Suspect]
     Indication: TYPE 2 DIABETES MELLITUS
     Dosage: 5 UG, 2/D, SUBCUTANEOUS ; 10 UG, 2/D, SUBCUTANEOUS
     Route: 058
     Dates: start: 20080401, end: 20080501
  2. BYETTA [Suspect]
     Indication: TYPE 2 DIABETES MELLITUS
     Dosage: 5 UG, 2/D, SUBCUTANEOUS ; 10 UG, 2/D, SUBCUTANEOUS
     Route: 058
     Dates: start: 20080502
  3. ACTOS [Concomitant]
  4. KLOR-CON M (POTASSIUM CHLORIDE) [Concomitant]
  5. ASA (ASPIRIN (ACETYLSALICYLIC ACID) UNKNOWN FORMULATION [Concomitant]

REACTIONS (4)
  - ANOREXIA [None]
  - HEADACHE [None]
  - INJECTION SITE HAEMATOMA [None]
  - VISION BLURRED [None]
